FAERS Safety Report 5227599-X (Version None)
Quarter: 2007Q1

REPORT INFORMATION
  Report Type: 
  Country: None (occurrence: None)
  Receive Date: 20061201
  Receipt Date: 20061019
  Transmission Date: 20070707
  Serious: No
  Sender: FDA-Public Use
  Company Number: US200610003866

PATIENT
  Age: 40 Year
  Sex: Female

DRUGS (3)
  1. CYMBALTA [Suspect]
     Dosage: SEE IMAGE
     Dates: start: 20060601, end: 20060101
  2. CYMBALTA [Suspect]
     Dosage: SEE IMAGE
     Dates: start: 20060101, end: 20061014
  3. CYMBALTA [Suspect]
     Dosage: SEE IMAGE
     Dates: start: 20060101

REACTIONS (4)
  - DIARRHOEA [None]
  - HEADACHE [None]
  - NAUSEA [None]
  - STOMACH DISCOMFORT [None]
